FAERS Safety Report 5710381-4 (Version None)
Quarter: 2008Q2

REPORT INFORMATION
  Report Type: 
  Country: None (occurrence: None)
  Receive Date: 20080418
  Receipt Date: 20080407
  Transmission Date: 20081010
  Serious: Yes (Other)
  Sender: FDA-Public Use
  Company Number: US-PFIZER INC-2008032377

PATIENT
  Sex: Male
  Weight: 68.2 kg

DRUGS (3)
  1. CHANTIX [Suspect]
     Indication: SMOKING CESSATION THERAPY
     Route: 048
  2. LIPITOR [Concomitant]
  3. NIASPAN [Concomitant]

REACTIONS (1)
  - BLOOD PRESSURE INCREASED [None]
